FAERS Safety Report 6389847-2 (Version None)
Quarter: 2009Q4

REPORT INFORMATION
  Report Type: 
  Country: None (occurrence: None)
  Receive Date: 20091006
  Receipt Date: 20081008
  Transmission Date: 20100525
  Serious: No
  Sender: FDA-Public Use
  Company Number: US-BRISTOL-MYERS SQUIBB COMPANY-14362834

PATIENT
  Age: 83 Year
  Sex: Female
  Weight: 71 kg

DRUGS (8)
  1. AVAPRO [Suspect]
     Indication: BLOOD PRESSURE INCREASED
     Dates: start: 20070101
  2. PRAVASTATIN SODIUM [Concomitant]
  3. TRIAMTERENE AND HYDROCHLOROTHIAZIDE [Concomitant]
  4. MULTI-VITAMIN [Concomitant]
  5. FISH OIL [Concomitant]
  6. CALCIUM [Concomitant]
  7. GARLIC [Concomitant]
  8. VITAMIN E [Concomitant]

REACTIONS (7)
  - ARTHRALGIA [None]
  - HAEMATOCRIT DECREASED [None]
  - HAEMOGLOBIN DECREASED [None]
  - MUSCLE SPASMS [None]
  - MYALGIA [None]
  - PAIN IN EXTREMITY [None]
  - RED BLOOD CELL COUNT DECREASED [None]
